FAERS Safety Report 20088849 (Version 1)
Quarter: 2021Q4

REPORT INFORMATION
  Report Type: Spontaneous
  Country: TH (occurrence: TH)
  Receive Date: 20211119
  Receipt Date: 20211119
  Transmission Date: 20220303
  Serious: Yes (Other)
  Sender: FDA-Public Use
  Company Number: TH-LUPIN PHARMACEUTICALS INC.-2021-22485

PATIENT
  Age: 45 Year
  Sex: Female

DRUGS (14)
  1. DESLORATADINE [Suspect]
     Active Substance: DESLORATADINE
     Indication: Urticaria chronic
     Dosage: DOSAGE WAS TITRATED TO A MAXIMUM
     Route: 065
  2. DESLORATADINE [Suspect]
     Active Substance: DESLORATADINE
     Indication: Angioedema
  3. FEXOFENADINE [Suspect]
     Active Substance: FEXOFENADINE HYDROCHLORIDE
     Indication: Urticaria chronic
     Dosage: DOSAGE WAS TITRATED TO A MAXIMUM
     Route: 065
  4. FEXOFENADINE [Suspect]
     Active Substance: FEXOFENADINE HYDROCHLORIDE
     Indication: Angioedema
  5. OMALIZUMAB [Concomitant]
     Active Substance: OMALIZUMAB
     Indication: Urticarial vasculitis
     Dosage: 150 MILLIGRAM
     Route: 058
  6. OMALIZUMAB [Concomitant]
     Active Substance: OMALIZUMAB
     Dosage: AFTER SIX CONSECUTIVE TREATMENTS, OMALIZUMAB WAS SPACED TO EVERY 6-8 WEEKS FOR A TOTAL OF 10 INJECTI
     Route: 058
  7. PREDNISOLONE [Concomitant]
     Active Substance: PREDNISOLONE
     Indication: Urticaria chronic
     Dosage: 0.5 MILLIGRAM/KILOGRAM, QD
     Route: 048
  8. PREDNISOLONE [Concomitant]
     Active Substance: PREDNISOLONE
     Indication: Angioedema
  9. PREDNISOLONE [Concomitant]
     Active Substance: PREDNISOLONE
     Indication: Condition aggravated
  10. HYDROXYCHLOROQUINE [Concomitant]
     Active Substance: HYDROXYCHLOROQUINE
     Indication: Urticarial vasculitis
     Dosage: 200 MILLIGRAM, QD
     Route: 065
  11. COLCHICINE [Concomitant]
     Active Substance: COLCHICINE
     Indication: Urticarial vasculitis
     Dosage: 1.2 MILLIGRAM, QD
     Route: 065
  12. MONTELUKAST [Concomitant]
     Active Substance: MONTELUKAST SODIUM
     Indication: Urticarial vasculitis
     Dosage: 10 MILLIGRAM, QD
     Route: 065
  13. INDOMETHACIN [Concomitant]
     Active Substance: INDOMETHACIN
     Indication: Urticarial vasculitis
     Dosage: 50 MILLIGRAM, QD
     Route: 065
  14. DAPSONE [Concomitant]
     Active Substance: DAPSONE
     Indication: Urticarial vasculitis
     Dosage: 100 MILLIGRAM, QD
     Route: 065

REACTIONS (1)
  - Drug ineffective [Unknown]
